FAERS Safety Report 7132911-0 (Version None)
Quarter: 2010Q4

REPORT INFORMATION
  Report Type: 
  Country: None (occurrence: None)
  Receive Date: 20101202
  Receipt Date: 20101129
  Transmission Date: 20110411
  Serious: Yes (Hospitalization, Other)
  Sender: FDA-Public Use
  Company Number: US-PFIZER INC-2010117293

PATIENT
  Sex: Female

DRUGS (6)
  1. CHANTIX [Suspect]
     Indication: SMOKING CESSATION THERAPY
     Dosage: CHANTIX STARTER AND CONTINUING MONTH PACK
     Dates: start: 20070321, end: 20090401
  2. PROZAC [Concomitant]
     Indication: DEPRESSION
     Dosage: UNK
     Dates: start: 20030101
  3. PROZAC [Concomitant]
     Indication: ANXIETY
  4. PROPOXYPHENE HCL AND ACETAMINOPHEN [Concomitant]
     Indication: PAIN
     Dosage: UNK
     Dates: start: 20040101, end: 20090101
  5. METHOCARBAMOL [Concomitant]
     Indication: MUSCLE RELAXANT THERAPY
     Dosage: UNK
     Dates: start: 20040101, end: 20090101
  6. DIAZEPAM [Concomitant]
     Indication: ANXIETY
     Dosage: UNK
     Dates: start: 20050101, end: 20090101

REACTIONS (4)
  - ANXIETY [None]
  - DEPRESSION [None]
  - PANIC ATTACK [None]
  - SUICIDAL IDEATION [None]
